FAERS Safety Report 4926901-3 (Version None)
Quarter: 2006Q1

REPORT INFORMATION
  Report Type: 
  Country: None (occurrence: None)
  Receive Date: 20060228
  Receipt Date: 20050714
  Transmission Date: 20060701
  Serious: No
  Sender: FDA-Public Use
  Company Number: US-GLAXOSMITHKLINE-A0566252A

PATIENT
  Age: 44 Year
  Sex: Female
  Weight: 63.6 kg

DRUGS (5)
  1. LAMICTAL [Suspect]
     Indication: BIPOLAR DISORDER
     Dosage: 200MG PER DAY
     Route: 048
     Dates: start: 20040501
  2. WELLBUTRIN XL [Concomitant]
     Dosage: 300MG PER DAY
     Route: 048
     Dates: start: 20050501
  3. CELEXA [Concomitant]
     Indication: DEPRESSION
     Dates: start: 20001001
  4. NEURONTIN [Concomitant]
     Indication: ANXIETY
     Dates: start: 20001001
  5. TRAZODONE [Concomitant]
     Indication: INSOMNIA
     Dosage: 100MG AT NIGHT
     Dates: start: 19990901

REACTIONS (1)
  - ORAL PAIN [None]
